FAERS Safety Report 11258284 (Version 1)
Quarter: 2015Q3

REPORT INFORMATION
  Report Type: Spontaneous
  Country: US (occurrence: US)
  Receive Date: 20150710
  Receipt Date: 20150710
  Transmission Date: 20151125
  Serious: Yes (Death, Hospitalization)
  Sender: FDA-Public Use
  Company Number: US-SA-2015SA097912

PATIENT
  Age: 36 Year
  Sex: Male

DRUGS (3)
  1. PHENCYCLIDINE [Suspect]
     Active Substance: PHENCYCLIDINE
     Indication: SCHIZOPHRENIA
     Route: 065
  2. PHENCYCLIDINE [Suspect]
     Active Substance: PHENCYCLIDINE
     Indication: BIPOLAR DISORDER
     Route: 065
  3. DIPHENHYDRAMINE. [Suspect]
     Active Substance: DIPHENHYDRAMINE
     Route: 065

REACTIONS (7)
  - Catatonia [Fatal]
  - Musculoskeletal stiffness [Fatal]
  - Vomiting [Fatal]
  - Seizure [Fatal]
  - Urinary incontinence [Fatal]
  - Cardiac arrest [Fatal]
  - Toxicity to various agents [Fatal]
